FAERS Safety Report 6314610-8 (Version None)
Quarter: 2009Q3

REPORT INFORMATION
  Report Type: 
  Country: None (occurrence: None)
  Receive Date: 20090819
  Receipt Date: 20090811
  Transmission Date: 20100115
  Serious: Yes (Hospitalization)
  Sender: FDA-Public Use
  Company Number: FR-ASTRAZENECA-2009SE07736

PATIENT
  Age: 89 Year
  Sex: Female

DRUGS (7)
  1. NEXIUM [Suspect]
     Dosage: 1DF DAILY
     Route: 048
     Dates: start: 20090630, end: 20090706
  2. AMLOR [Suspect]
     Dosage: 1DF DAILY
     Route: 048
     Dates: start: 20090621, end: 20090704
  3. AUGMENTIN [Suspect]
     Dates: start: 20090624, end: 20090701
  4. RAMIPRIL [Concomitant]
     Dates: start: 20090704, end: 20090706
  5. PREVISCAN [Concomitant]
  6. ACEBUTOLOL [Concomitant]
  7. DIGOXIN [Concomitant]

REACTIONS (3)
  - PRURITUS [None]
  - RASH MACULAR [None]
  - SKIN PLAQUE [None]
